FAERS Safety Report 8815048 (Version 1)
Quarter: 2012Q4

REPORT INFORMATION
  Report Type: 
  Country: US (occurrence: US)
  Receive Date: 20120928
  Receipt Date: 20120928
  Transmission Date: 20130627
  Serious: No
  Sender: FDA-Public Use
  Company Number: US-PFIZER INC-2012237259

PATIENT
  Age: 38 Year
  Sex: Female
  Weight: 127 kg

DRUGS (2)
  1. LYRICA [Suspect]
     Indication: FIBROMYALGIA
     Dosage: 150 mg, daily
     Route: 048
     Dates: start: 2012, end: 201209
  2. GEODON [Concomitant]
     Indication: PSYCHOTIC DISORDER
     Dosage: 40 mg, 2x/day

REACTIONS (1)
  - Nightmare [Recovered/Resolved]
